FAERS Safety Report 5323347-3 (Version None)
Quarter: 2007Q2

REPORT INFORMATION
  Report Type: 
  Country: None (occurrence: None)
  Receive Date: 20070514
  Receipt Date: 20070507
  Transmission Date: 20071010
  Serious: Yes (Other)
  Sender: FDA-Public Use
  Company Number: HQWYE217403NOV04

PATIENT
  Sex: Female
  Weight: 65.83 kg

DRUGS (1)
  1. PREMPRO [Suspect]

REACTIONS (1)
  - BREAST CANCER METASTATIC [None]
